FAERS Safety Report 20696890 (Version 1)
Quarter: 2022Q2

REPORT INFORMATION
  Report Type: Spontaneous
  Country: US (occurrence: US)
  Receive Date: 20220411
  Receipt Date: 20220411
  Transmission Date: 20220720
  Serious: No
  Sender: FDA-Public Use
  Company Number: US-Adamas_Pharmaceuticals-USA-POI1235202100095

PATIENT
  Age: 54 Year
  Sex: Male

DRUGS (3)
  1. OSMOLEX ER [Suspect]
     Active Substance: AMANTADINE
     Indication: Parkinson^s disease
     Dates: start: 20210810, end: 20210910
  2. OSMOLEX ER [Suspect]
     Active Substance: AMANTADINE
     Dates: start: 20210911, end: 20210928
  3. OSMOLEX ER [Suspect]
     Active Substance: AMANTADINE
     Dates: start: 20210929

REACTIONS (1)
  - Oedema peripheral [Recovering/Resolving]

NARRATIVE: CASE EVENT DATE: 20210923
